FAERS Safety Report 23038936 (Version 1)
Quarter: 2023Q4

REPORT INFORMATION
  Report Type: Other
  Country: PT (occurrence: PT)
  Receive Date: 20231006
  Receipt Date: 20231006
  Transmission Date: 20240109
  Serious: Yes (Other)
  Sender: FDA-Public Use
  Company Number: PT-ROCHE-3432012

PATIENT
  Age: 4 Month
  Sex: Female

DRUGS (2)
  1. GANCICLOVIR [Suspect]
     Active Substance: GANCICLOVIR
     Indication: Congenital cytomegalovirus infection
     Route: 065
  2. VALGANCICLOVIR [Suspect]
     Active Substance: VALGANCICLOVIR
     Indication: Congenital cytomegalovirus infection
     Route: 065

REACTIONS (4)
  - Feeding disorder [Unknown]
  - Psychomotor skills impaired [Unknown]
  - Off label use [Unknown]
  - Off label use [Unknown]
